FAERS Safety Report 15196117 (Version 3)
Quarter: 2020Q2

REPORT INFORMATION
  Report Type: Spontaneous
  Country: FR (occurrence: FR)
  Receive Date: 20180725
  Receipt Date: 20200506
  Transmission Date: 20200713
  Serious: Yes (Other)
  Sender: FDA-Public Use
  Company Number: FR-PFIZER INC-2018292799

PATIENT
  Age: 91 Year
  Sex: Female
  Weight: 33 kg

DRUGS (6)
  1. LAROXYL [Suspect]
     Active Substance: AMITRIPTYLINE HYDROCHLORIDE
     Indication: ANXIETY
     Dosage: 30 DROP, DAILY
     Route: 048
     Dates: start: 20180215, end: 20180226
  2. PREVISCAN [FLUINDIONE] [Concomitant]
     Active Substance: FLUINDIONE
     Dosage: UNK
  3. NEURONTIN [Suspect]
     Active Substance: GABAPENTIN
     Indication: NEURALGIA
     Dosage: 300 MG, 1X/DAY (3DF 1X/DAY)
     Route: 048
     Dates: start: 20180227, end: 20180309
  4. DUROGESIC [Suspect]
     Active Substance: FENTANYL
     Indication: PAIN
     Dosage: 1 DF, EVERY 3 DAYS
     Route: 062
     Dates: start: 20180227, end: 20180309
  5. OXYCODONE [Suspect]
     Active Substance: OXYCODONE
     Indication: PAIN
     Dosage: 5 MG, 1X/DAY
     Route: 048
     Dates: start: 20180227, end: 20180309
  6. INSTANYL [Suspect]
     Active Substance: FENTANYL
     Indication: PAIN
     Dosage: 1 DF, DAILY
     Route: 045
     Dates: start: 2015, end: 2017

REACTIONS (4)
  - Condition aggravated [Not Recovered/Not Resolved]
  - Serotonin syndrome [Not Recovered/Not Resolved]
  - Oedema peripheral [Not Recovered/Not Resolved]
  - Lupus-like syndrome [Not Recovered/Not Resolved]

NARRATIVE: CASE EVENT DATE: 20180227
